FAERS Safety Report 12557273 (Version 3)
Quarter: 2016Q3

REPORT INFORMATION
  Report Type: Report from Study
  Country: BR (occurrence: BR)
  Receive Date: 20160714
  Receipt Date: 20160825
  Transmission Date: 20161109
  Serious: Yes (Death, Hospitalization, Other)
  Sender: FDA-Public Use
  Company Number: BR-TAKEDA-2016TUS011752

PATIENT
  Age: 50 Year
  Sex: Female

DRUGS (1)
  1. VEDOLIZUMAB [Suspect]
     Active Substance: VEDOLIZUMAB
     Indication: CROHN^S DISEASE
     Dosage: 300 MG, UNK
     Route: 042
     Dates: end: 20160804

REACTIONS (6)
  - Asthenia [Unknown]
  - Abasia [Unknown]
  - Death [Fatal]
  - Anal abscess [Unknown]
  - Spinal disorder [Unknown]
  - Breast abscess [Unknown]

NARRATIVE: CASE EVENT DATE: 20160705
